FAERS Safety Report 8371188-5 (Version None)
Quarter: 2012Q2

REPORT INFORMATION
  Report Type: 
  Country: None (occurrence: None)
  Receive Date: 20120518
  Receipt Date: 20120514
  Transmission Date: 20120825
  Serious: Yes (Hospitalization)
  Sender: FDA-Public Use
  Company Number: PHHO2012US007324

PATIENT
  Sex: Male

DRUGS (6)
  1. LISINOPRIL [Suspect]
  2. SAXAGLIPTIN [Concomitant]
     Indication: TYPE 2 DIABETES MELLITUS
     Dosage: UNK
     Dates: start: 20110914, end: 20111010
  3. LANTUS [Concomitant]
     Dosage: 8 IU, UNK
  4. FUROSEMIDE [Suspect]
     Dosage: 120 MGX1 THEN 20MG/HR
     Dates: start: 20111010
  5. VALSARTAN [Suspect]
  6. GLIPIZIDE [Concomitant]
     Indication: TYPE 2 DIABETES MELLITUS
     Dosage: 20 MG, UNK

REACTIONS (2)
  - RENAL FAILURE ACUTE [None]
  - ANAEMIA [None]
